FAERS Safety Report 8065809-4 (Version None)
Quarter: 2012Q1

REPORT INFORMATION
  Report Type: 
  Country: None (occurrence: None)
  Receive Date: 20120124
  Receipt Date: 20120112
  Transmission Date: 20120608
  Serious: Yes (Other)
  Sender: FDA-Public Use
  Company Number: PHHY2012US002698

PATIENT
  Age: 65 Year
  Sex: Male

DRUGS (4)
  1. PRADAXA [Concomitant]
     Indication: ATRIAL FIBRILLATION
     Dosage: 150 MG, BID
     Route: 048
  2. FORADIL [Concomitant]
     Indication: ASTHMA
     Dosage: 12 UG, BID
  3. BUFFERIN [Suspect]
     Dosage: 325 MG, UNK
     Route: 048
  4. SPIRIVA [Concomitant]
     Indication: ASTHMA
     Dosage: 18 UG, QD

REACTIONS (4)
  - INCORRECT DRUG ADMINISTRATION DURATION [None]
  - RESPIRATORY TRACT INFECTION [None]
  - ATRIAL FIBRILLATION [None]
  - DIZZINESS [None]
